FAERS Safety Report 15273895 (Version 2)
Quarter: 2018Q3

REPORT INFORMATION
  Report Type: Spontaneous
  Country: SG (occurrence: SG)
  Receive Date: 20180813
  Receipt Date: 20180823
  Transmission Date: 20181010
  Serious: Yes (Hospitalization)
  Sender: FDA-Public Use
  Company Number: SG-BAXTER-2018BAX021326

PATIENT
  Age: 64 Year
  Sex: Female

DRUGS (2)
  1. SODIUM CHLORIDE INJECTION USP 0.9% [Suspect]
     Active Substance: SODIUM CHLORIDE
     Indication: IRRIGATION THERAPY
     Dosage: PUMP SPEED OF 200?250
     Route: 010
     Dates: end: 20180801
  2. BICART 650 [Suspect]
     Active Substance: SODIUM BICARBONATE
     Indication: HAEMODIALYSIS
     Route: 010
     Dates: end: 20180801

REACTIONS (3)
  - Urticaria [Recovered/Resolved]
  - Angioedema [Not Recovered/Not Resolved]
  - Hypotension [Recovered/Resolved]

NARRATIVE: CASE EVENT DATE: 20180801
